FAERS Safety Report 8762510 (Version 1)
Quarter: 2012Q4

REPORT INFORMATION
  Report Type: 
  Country: BR (occurrence: BR)
  Receive Date: 20120828
  Receipt Date: 20120828
  Transmission Date: 20130627
  Serious: Yes (Death)
  Sender: FDA-Public Use
  Company Number: BR-PFIZER INC-2012190896

PATIENT
  Age: 49 Year
  Sex: Male
  Weight: 67 kg

DRUGS (3)
  1. SUTENT [Suspect]
     Indication: RENAL CANCER
     Dosage: 50 mg, 1x/day
     Route: 048
     Dates: start: 20120726
  2. MAREVAN ^NYCOMED^ [Concomitant]
     Dosage: UNK
     Route: 048
  3. FENAFLAN [Concomitant]
     Dosage: 450 mg plus 50 mg, 2x/day (every 12 hours)

REACTIONS (4)
  - Death [Fatal]
  - Aphthous stomatitis [Unknown]
  - Skin discolouration [Unknown]
  - Acne [Unknown]
